FAERS Safety Report 15458689 (Version 1)
Quarter: 2018Q4

REPORT INFORMATION
  Report Type: Spontaneous
  Country: US (occurrence: US)
  Receive Date: 20181001
  Receipt Date: 20181001
  Transmission Date: 20190204
  Serious: Yes (Disabling, Other)
  Sender: FDA-Public Use
  Company Number: None

PATIENT
  Age: 61 Year
  Sex: Female
  Weight: 99 kg

DRUGS (13)
  1. MULTI-VITAMINS FOR WOMEN 50+ [Concomitant]
  2. LOSARTAN. [Concomitant]
     Active Substance: LOSARTAN
  3. TRINTELLIX [Concomitant]
     Active Substance: VORTIOXETINE HYDROBROMIDE
  4. ALLEGRA [Concomitant]
     Active Substance: FEXOFENADINE HYDROCHLORIDE
  5. VITAMIN E [Concomitant]
     Active Substance: .ALPHA.-TOCOPHEROL
  6. VITAMIN D3 [Concomitant]
     Active Substance: CHOLECALCIFEROL
  7. SYSTANE EYEDROPS [Concomitant]
     Active Substance: POLYETHYLENE GLYCOL 400\PROPYLENE GLYCOL
  8. LEVOTHYROXINE. [Concomitant]
     Active Substance: LEVOTHYROXINE
  9. TRINTELLIX [Suspect]
     Active Substance: VORTIOXETINE HYDROBROMIDE
     Indication: DEPRESSION
     Dosage: ?          QUANTITY:7 TABLET(S);?
     Route: 048
     Dates: start: 20180818
  10. ESTER-C [Concomitant]
     Active Substance: CALCIUM\VITAMINS
  11. ATORVASTATIN [Concomitant]
     Active Substance: ATORVASTATIN
  12. DIAZEPAM. [Concomitant]
     Active Substance: DIAZEPAM
  13. LORAZEPAM. [Concomitant]
     Active Substance: LORAZEPAM

REACTIONS (11)
  - Anger [None]
  - Insomnia [None]
  - Dizziness [None]
  - Restlessness [None]
  - Hallucination [None]
  - Confusional state [None]
  - Cognitive disorder [None]
  - Headache [None]
  - Mood swings [None]
  - Hyperventilation [None]
  - Formication [None]

NARRATIVE: CASE EVENT DATE: 20181001
